FAERS Safety Report 8439333-0 (Version None)
Quarter: 2012Q2

REPORT INFORMATION
  Report Type: 
  Country: None (occurrence: None)
  Receive Date: 20120615
  Receipt Date: 20120612
  Transmission Date: 20120825
  Serious: Yes (Death, Hospitalization)
  Sender: FDA-Public Use
  Company Number: PHHY2012BR050886

PATIENT
  Sex: Female

DRUGS (4)
  1. DIOVAN HCT [Suspect]
     Dosage: 160/12.5 MG, UNK
  2. REPAMER [Concomitant]
     Indication: MEMORY IMPAIRMENT
     Dosage: UNK
  3. LEVOTHYROXINE SODIUM [Concomitant]
     Indication: THYROID DISORDER
     Dosage: 125 MG, UNK
  4. LOSARTAN POTASSIUM [Concomitant]
     Indication: HYPERTENSION
     Dosage: UNK

REACTIONS (6)
  - HEPATIC CIRRHOSIS [None]
  - URINARY TRACT INFECTION [None]
  - LIVER DISORDER [None]
  - SEPTIC SHOCK [None]
  - HEPATITIS C [None]
  - AMNESIA [None]
